FAERS Safety Report 9257878 (Version 1)
Quarter: 2013Q2

REPORT INFORMATION
  Report Type: Spontaneous
  Country: US (occurrence: None)
  Receive Date: 20130424
  Receipt Date: 20130424
  Transmission Date: 20140414
  Serious: Yes (Other)
  Sender: FDA-Public Use
  Company Number: None

PATIENT
  Age: 72 Year
  Sex: Female
  Weight: 55.5 kg

DRUGS (8)
  1. MULTAQ [Suspect]
     Dosage: 400 MG Q12H PO ( WITH FOOD)
     Route: 048
     Dates: start: 20130412, end: 20130414
  2. NARDIL [Suspect]
     Dosage: CHRONIC USE FOR YEARS 15 MG, Q6H
  3. PHENELZINE [Concomitant]
  4. DEXTROAMPHETAMINE [Concomitant]
  5. PLAQUENIL [Concomitant]
  6. BUTRANS (20) [Concomitant]
  7. HYDROCODONE [Concomitant]
  8. PREDNISONE [Concomitant]

REACTIONS (4)
  - Bradycardia [None]
  - Potentiating drug interaction [None]
  - Asthenia [None]
  - Dyspnoea [None]
